FAERS Safety Report 6377390-6 (Version None)
Quarter: 2009Q3

REPORT INFORMATION
  Report Type: 
  Country: None (occurrence: None)
  Receive Date: 20090921
  Receipt Date: 20090916
  Transmission Date: 20100115
  Serious: Yes (Hospitalization)
  Sender: FDA-Public Use
  Company Number: 2009SP026034

PATIENT
  Sex: Female

DRUGS (1)
  1. DIPROSALIC (BETAMETHASONE DIPROPIONATE/SALICYLIC ACID) (BETAMETHASONE [Suspect]
     Indication: DRUG USE FOR UNKNOWN INDICATION

REACTIONS (2)
  - ADRENAL DISORDER [None]
  - COMA [None]
